FAERS Safety Report 5005078-2 (Version None)
Quarter: 2006Q2

REPORT INFORMATION
  Report Type: 
  Country: None (occurrence: None)
  Receive Date: 20060518
  Receipt Date: 20060510
  Transmission Date: 20061013
  Serious: Yes (Death, Other)
  Sender: FDA-Public Use
  Company Number: ES-JNJFOC-20060401922

PATIENT
  Age: 37 Year
  Sex: Female

DRUGS (3)
  1. REMICADE [Suspect]
     Indication: CROHN'S DISEASE
     Dosage: TWO DOSES
     Route: 042
  2. STEROIDS [Concomitant]
     Route: 065
  3. DACORTIN [Concomitant]
     Indication: CROHN'S DISEASE
     Route: 065

REACTIONS (2)
  - DEMYELINATION [None]
  - MENINGITIS LISTERIA [None]
